FAERS Safety Report 7288586-3 (Version None)
Quarter: 2011Q1

REPORT INFORMATION
  Report Type: 
  Country: None (occurrence: None)
  Receive Date: 20110211
  Receipt Date: 20110131
  Transmission Date: 20110831
  Serious: Yes (Other)
  Sender: FDA-Public Use
  Company Number: US-ELI_LILLY_AND_COMPANY-US201102000382

PATIENT
  Age: 46 Year
  Sex: Female
  Weight: 89.8 kg

DRUGS (3)
  1. LYRICA [Concomitant]
     Indication: FIBROMYALGIA
     Dosage: UNK, UNKNOWN
     Dates: start: 20030101, end: 20040101
  2. CYMBALTA [Suspect]
     Indication: PAIN
     Dosage: UNK, UNKNOWN
     Dates: start: 20040101, end: 20100801
  3. ASPIRIN [Concomitant]

REACTIONS (7)
  - ALOPECIA [None]
  - ANXIETY [None]
  - ANEURYSM RUPTURED [None]
  - OFF LABEL USE [None]
  - ANEURYSM [None]
  - GASTROOESOPHAGEAL REFLUX DISEASE [None]
  - STRESS [None]
